FAERS Safety Report 9041086 (Version 1)
Quarter: 2013Q1

REPORT INFORMATION
  Report Type: Report from Study
  Country: US (occurrence: US)
  Receive Date: 20130129
  Receipt Date: 20130129
  Transmission Date: 20140127
  Serious: No
  Sender: FDA-Public Use
  Company Number: US-ABBOTT-12P-163-0900772-00

PATIENT
  Age: 39 Year
  Sex: Female

DRUGS (2)
  1. HUMIRA 40 MG/ 0.8 ML PRE-FILLED SYRINGE [Suspect]
     Indication: PSORIATIC ARTHROPATHY
     Route: 058
  2. HUMIRA 40 MG/ 0.8 ML PRE-FILLED SYRINGE [Suspect]
     Indication: PSORIASIS

REACTIONS (3)
  - Eye pain [Not Recovered/Not Resolved]
  - Ocular icterus [Not Recovered/Not Resolved]
  - Paraesthesia [Not Recovered/Not Resolved]
